FAERS Safety Report 8910113 (Version 1)
Quarter: 2012Q4

REPORT INFORMATION
  Report Type: 
  Country: GB (occurrence: GB)
  Receive Date: 20121115
  Receipt Date: 20121115
  Transmission Date: 20130627
  Serious: Yes (Other)
  Sender: FDA-Public Use
  Company Number: GB-B.I. PHARMACEUTICALS,INC./RIDGEFIELD-2012-BI-00348YA

PATIENT
  Age: 62 Year
  Sex: Male
  Weight: 96 kg

DRUGS (12)
  1. TAMSULOSINA [Suspect]
     Indication: BLADDER DISORDER
     Dosage: 40 mcg
     Route: 065
     Dates: start: 20121003, end: 20121014
  2. FINASTERIDE (FINASTERIDE) [Suspect]
     Indication: BLADDER DISORDER
     Dosage: 5 mg
     Route: 065
     Dates: start: 20121003, end: 20121014
  3. EZETIMIBE (EZETIMIBE) [Concomitant]
     Dosage: 10 mg
  4. LACTULOSE (LACTULOSE) [Concomitant]
  5. METFORMIN HYDROCHLORIDE (METFORMIN HYDROCHLORIDE) [Concomitant]
     Dosage: 1000 mg
  6. MONTELUKAST SODIUM (MONTELUKAST SODIUM) [Concomitant]
     Dosage: 10 mg
  7. OMEPRAZOLE (OMEPRAZOLE) [Concomitant]
     Dosage: 20 mg
  8. SENNA (SENNA SPP) [Concomitant]
  9. SITAGLIPTIN (SITAGLIPTIN) [Concomitant]
     Dosage: 100 mg
  10. SYMBICORT (SYMBICORT) [Concomitant]
     Dosage: 400 mcg
     Route: 055
  11. TERBUTALINE (TERBUTALINE) [Concomitant]
  12. ZOMORPH (MORPHINE SULFATE) [Concomitant]
     Dosage: 120 mg

REACTIONS (9)
  - Abdominal pain [Not Recovered/Not Resolved]
  - Chest pain [Not Recovered/Not Resolved]
  - Dizziness [Not Recovered/Not Resolved]
  - Malaise [Not Recovered/Not Resolved]
  - Headache [Not Recovered/Not Resolved]
  - Diarrhoea [Not Recovered/Not Resolved]
  - Pain [Not Recovered/Not Resolved]
  - Palpitations [Not Recovered/Not Resolved]
  - Testicular pain [Not Recovered/Not Resolved]
